FAERS Safety Report 8569480 (Version 2)
Quarter: 2013Q2

REPORT INFORMATION
  Report Type: Spontaneous
  Country: US (occurrence: US)
  Receive Date: 20120518
  Receipt Date: 20130521
  Transmission Date: 20140414
  Serious: No
  Sender: FDA-Public Use
  Company Number: US-BRISTOL-MYERS SQUIBB COMPANY-16317760

PATIENT
  Age: 56 Year
  Sex: Male
  Weight: 75 kg

DRUGS (5)
  1. BARACLUDE TABS [Suspect]
     Indication: CHRONIC HEPATITIS B
     Route: 048
  2. NORVIR [Concomitant]
     Indication: HIV INFECTION
  3. LEXIVA [Concomitant]
     Indication: HIV INFECTION
  4. ZERIT [Concomitant]
     Indication: HIV INFECTION
  5. EPIVIR [Concomitant]
     Indication: HIV INFECTION

REACTIONS (3)
  - Pruritus [Recovered/Resolved]
  - Alopecia [Unknown]
  - Paraesthesia [Unknown]
